FAERS Safety Report 24332915 (Version 1)
Quarter: 2024Q3

REPORT INFORMATION
  Report Type: Report from Study
  Country: IE (occurrence: IE)
  Receive Date: 20240918
  Receipt Date: 20240918
  Transmission Date: 20241016
  Serious: Yes (Other)
  Sender: MYLAN
  Company Number: IE-MYLANLABS-2024M1084126

PATIENT
  Age: 57 Year
  Sex: Female

DRUGS (12)
  1. CANDESARTAN [Suspect]
     Active Substance: CANDESARTAN
     Indication: New daily persistent headache
     Dosage: UNK
     Route: 065
  2. CANDESARTAN [Suspect]
     Active Substance: CANDESARTAN
     Indication: Migraine prophylaxis
  3. PREGABALIN [Suspect]
     Active Substance: PREGABALIN
     Indication: New daily persistent headache
     Dosage: UNK
     Route: 065
  4. PREGABALIN [Suspect]
     Active Substance: PREGABALIN
     Indication: Migraine prophylaxis
  5. VENLAFAXINE [Suspect]
     Active Substance: VENLAFAXINE HYDROCHLORIDE
     Indication: New daily persistent headache
     Dosage: UNK
     Route: 065
  6. VENLAFAXINE [Suspect]
     Active Substance: VENLAFAXINE HYDROCHLORIDE
     Indication: Migraine prophylaxis
  7. DOSULEPIN HYDROCHLORIDE [Suspect]
     Active Substance: DOTHIEPIN HYDROCHLORIDE
     Indication: New daily persistent headache
     Dosage: UNK
     Route: 065
  8. DOSULEPIN HYDROCHLORIDE [Suspect]
     Active Substance: DOTHIEPIN HYDROCHLORIDE
     Indication: Migraine prophylaxis
  9. LACOSAMIDE [Suspect]
     Active Substance: LACOSAMIDE
     Indication: New daily persistent headache
     Dosage: UNK
     Route: 065
  10. LACOSAMIDE [Suspect]
     Active Substance: LACOSAMIDE
     Indication: Migraine prophylaxis
  11. NORTRIPTYLINE [Suspect]
     Active Substance: NORTRIPTYLINE
     Indication: New daily persistent headache
     Dosage: UNK
     Route: 065
  12. NORTRIPTYLINE [Suspect]
     Active Substance: NORTRIPTYLINE
     Indication: Migraine prophylaxis

REACTIONS (2)
  - Treatment failure [Unknown]
  - Off label use [Unknown]
